FAERS Safety Report 16693873 (Version 2)
Quarter: 2020Q1

REPORT INFORMATION
  Report Type: Spontaneous
  Country: US (occurrence: US)
  Receive Date: 20190812
  Receipt Date: 20200110
  Transmission Date: 20200409
  Serious: No
  Sender: FDA-Public Use
  Company Number: US-JNJFOC-20190813268

PATIENT
  Age: 43 Year
  Sex: Female
  Weight: 86.26 kg

DRUGS (1)
  1. RISPERDAL CONSTA [Suspect]
     Active Substance: RISPERIDONE
     Indication: ACCIDENTAL EXPOSURE TO PRODUCT
     Route: 030

REACTIONS (2)
  - Accidental exposure to product [Unknown]
  - Syringe issue [Unknown]

NARRATIVE: CASE EVENT DATE: 20190808
